FAERS Safety Report 20730303 (Version 1)
Quarter: 2022Q2

REPORT INFORMATION
  Report Type: Spontaneous
  Country: US (occurrence: None)
  Receive Date: 20220419
  Receipt Date: 20220419
  Transmission Date: 20220720
  Serious: Yes (Other)
  Sender: FDA-Public Use
  Company Number: None

PATIENT
  Age: 68 Year
  Sex: Male
  Weight: 67.32 kg

DRUGS (2)
  1. OLANZAPINE [Suspect]
     Active Substance: OLANZAPINE
     Dosage: OTHER FREQUENCY : NOON;?
     Route: 048
     Dates: start: 20220208, end: 20220222
  2. OLANZAPINE [Suspect]
     Active Substance: OLANZAPINE
     Dosage: FREQUENCY : AT BEDTIME;?
     Route: 048
     Dates: start: 20220208, end: 20220222

REACTIONS (5)
  - Fall [None]
  - Skin laceration [None]
  - Gait disturbance [None]
  - Skin laceration [None]
  - Abnormal behaviour [None]

NARRATIVE: CASE EVENT DATE: 20220221
